FAERS Safety Report 10591042 (Version 2)
Quarter: 2014Q4

REPORT INFORMATION
  Report Type: Spontaneous
  Country: US (occurrence: US)
  Receive Date: 20141118
  Receipt Date: 20141230
  Transmission Date: 20150529
  Serious: Yes (Other)
  Sender: FDA-Public Use
  Company Number: US-BAYER-2014-168560

PATIENT
  Age: 68 Year
  Sex: Male

DRUGS (13)
  1. AMLODIPINE [Concomitant]
     Active Substance: AMLODIPINE BESYLATE
  2. VITAMIN D3 [Concomitant]
     Active Substance: CHOLECALCIFEROL
  3. DICLOFENAC [Concomitant]
     Active Substance: DICLOFENAC
  4. XOFIGO [Suspect]
     Active Substance: RADIUM RA-223 DICHLORIDE
     Indication: PROSTATE CANCER STAGE IV
     Dosage: 145.0 UCI
     Route: 042
     Dates: start: 20140523, end: 20140523
  5. XOFIGO [Suspect]
     Active Substance: RADIUM RA-223 DICHLORIDE
     Indication: PROSTATE CANCER STAGE IV
     Dosage: 151.5 UCI
     Route: 042
     Dates: start: 20140722, end: 20140722
  6. FLOMAX [Concomitant]
     Active Substance: TAMSULOSIN HYDROCHLORIDE
  7. XOFIGO [Suspect]
     Active Substance: RADIUM RA-223 DICHLORIDE
     Indication: PROSTATE CANCER STAGE IV
     Dosage: 152.8 UCI
     Route: 042
     Dates: start: 20140819, end: 20140819
  8. XOFIGO [Suspect]
     Active Substance: RADIUM RA-223 DICHLORIDE
     Indication: PROSTATE CANCER STAGE IV
     Dosage: 152.8 UCI
     Route: 042
     Dates: start: 20141111, end: 20141111
  9. ASPIRIN. [Concomitant]
     Active Substance: ASPIRIN
  10. XOFIGO [Suspect]
     Active Substance: RADIUM RA-223 DICHLORIDE
     Indication: METASTASES TO BONE
     Dosage: 148.7 UCI
     Route: 042
     Dates: start: 20140620, end: 20140620
  11. XOFIGO [Suspect]
     Active Substance: RADIUM RA-223 DICHLORIDE
     Indication: PROSTATE CANCER STAGE IV
     Dosage: 155.8 UCI
     Route: 042
     Dates: start: 20140925, end: 20140925
  12. CALCIUM [Concomitant]
     Active Substance: CALCIUM
  13. POTASSIUM CHLORIDE. [Concomitant]
     Active Substance: POTASSIUM CHLORIDE

REACTIONS (2)
  - Arthralgia [Recovering/Resolving]
  - Radiotherapy to bone [None]

NARRATIVE: CASE EVENT DATE: 20141028
